FAERS Safety Report 8015306-7 (Version None)
Quarter: 2011Q4

REPORT INFORMATION
  Report Type: 
  Country: None (occurrence: None)
  Receive Date: 20111230
  Receipt Date: 20111221
  Transmission Date: 20120403
  Serious: Yes (Hospitalization)
  Sender: FDA-Public Use
  Company Number: US-CELGENEUS-163-21880-11113217

PATIENT
  Sex: Male

DRUGS (1)
  1. REVLIMID [Suspect]
     Indication: NEOPLASM MALIGNANT
     Dosage: 10 MILLIGRAM
     Route: 048
     Dates: start: 20110920, end: 20111001

REACTIONS (1)
  - MULTIPLE MYELOMA [None]
